FAERS Safety Report 10281707 (Version 2)
Quarter: 2014Q3

REPORT INFORMATION
  Report Type: Spontaneous
  Country: US (occurrence: US)
  Receive Date: 20140707
  Receipt Date: 20140725
  Transmission Date: 20150326
  Serious: No
  Sender: FDA-Public Use
  Company Number: US-PFIZER INC-2014185826

PATIENT
  Age: 48 Year
  Sex: Female

DRUGS (1)
  1. XANAX [Suspect]
     Active Substance: ALPRAZOLAM
     Dosage: 0.5 TO 1 TABLET ONCE A DAY AS NEEDED
     Route: 048
     Dates: start: 20131001, end: 20140102

REACTIONS (2)
  - Drug hypersensitivity [Unknown]
  - Headache [Recovered/Resolved]
